FAERS Safety Report 7378975-0 (Version None)
Quarter: 2011Q1

REPORT INFORMATION
  Report Type: 
  Country: None (occurrence: None)
  Receive Date: 20110328
  Receipt Date: 20110315
  Transmission Date: 20110831
  Serious: Yes (Hospitalization)
  Sender: FDA-Public Use
  Company Number: US-ELI_LILLY_AND_COMPANY-US201103004850

PATIENT
  Sex: Female

DRUGS (2)
  1. INSULIN [Concomitant]
  2. FORTEO [Suspect]
     Indication: OSTEOPOROSIS
     Dosage: 20 UG, DAILY (1/D)
     Dates: start: 20110308, end: 20110311

REACTIONS (5)
  - FALL [None]
  - VOMITING [None]
  - DIARRHOEA [None]
  - BLOOD PRESSURE DECREASED [None]
  - NAUSEA [None]
